FAERS Safety Report 8228954 (Version 2)
Quarter: 2012Q4

REPORT INFORMATION
  Report Type: 
  Country: JP (occurrence: JP)
  Receive Date: 20111104
  Receipt Date: 20121004
  Transmission Date: 20130627
  Serious: Yes (Hospitalization, Other)
  Sender: FDA-Public Use
  Company Number: JP-SANOFI-AVENTIS-2011SA066554

PATIENT
  Age: 69 Year
  Sex: Male

DRUGS (17)
  1. TAXOTERE [Suspect]
     Indication: GASTRIC CANCER
     Route: 041
     Dates: start: 20091020, end: 20091125
  2. TAXOTERE [Suspect]
     Indication: SQUAMOUS CELL CARCINOMA OF LUNG
     Route: 041
     Dates: start: 20091020, end: 20091125
  3. TAXOTERE [Suspect]
     Indication: GASTRIC CANCER
     Route: 041
     Dates: start: 20100507, end: 20100507
  4. TAXOTERE [Suspect]
     Indication: SQUAMOUS CELL CARCINOMA OF LUNG
     Route: 041
     Dates: start: 20100507, end: 20100507
  5. TAXOTERE [Suspect]
     Indication: GASTRIC CANCER
     Route: 041
     Dates: start: 20100706, end: 20100706
  6. TAXOTERE [Suspect]
     Indication: SQUAMOUS CELL CARCINOMA OF LUNG
     Route: 041
     Dates: start: 20100706, end: 20100706
  7. TAXOTERE [Suspect]
     Indication: GASTRIC CANCER
     Dosage: second course and dose continued to toatl 11 courses.
     Route: 041
     Dates: start: 20100602, end: 20100602
  8. TAXOTERE [Suspect]
     Indication: SQUAMOUS CELL CARCINOMA OF LUNG
     Dosage: second course and dose continued to toatl 11 courses.
     Route: 041
     Dates: start: 20100602, end: 20100602
  9. THERAPEUTIC RADIOPHARMACEUTICALS [Suspect]
     Dosage: 2 Gy/Fr, in total of 60 Gy
     Route: 065
     Dates: start: 20091020, end: 20091202
  10. THERAPEUTIC RADIOPHARMACEUTICALS [Suspect]
     Indication: SQUAMOUS CELL CARCINOMA OF LUNG
     Dosage: 2 Gy/Fr, in total of 60 Gy
     Route: 065
     Dates: start: 20091020, end: 20091202
  11. ALFAROL [Concomitant]
     Indication: RENAL FAILURE
     Route: 048
  12. ALLOPURINOL [Concomitant]
     Indication: HYPERURICAEMIA
     Route: 048
  13. AMLODIN [Concomitant]
     Indication: HYPERTENSION
     Route: 048
  14. ARTIST [Concomitant]
     Indication: HYPERTENSION
     Route: 048
  15. VITAMIN D3 [Concomitant]
  16. GRANISETRON [Concomitant]
     Indication: PREMEDICATION
  17. DEXAMETHASONE [Concomitant]
     Indication: PREMEDICATION

REACTIONS (7)
  - Nephropathy toxic [Recovered/Resolved]
  - Beta 2 microglobulin increased [Recovered/Resolved]
  - Radiation pneumonitis [Recovering/Resolving]
  - Pyrexia [Recovering/Resolving]
  - Febrile neutropenia [Unknown]
  - Haematotoxicity [Unknown]
  - Fatigue [Unknown]
